FAERS Safety Report 9121345 (Version 1)
Quarter: 2013Q1

REPORT INFORMATION
  Report Type: Spontaneous
  Country: US (occurrence: US)
  Receive Date: 20130225
  Receipt Date: 20130225
  Transmission Date: 20140127
  Serious: Yes (Death, Hospitalization, Other)
  Sender: FDA-Public Use
  Company Number: US-TEVA-387464USA

PATIENT
  Age: 78 Year
  Sex: Female

DRUGS (11)
  1. SUMATRIPTAN [Suspect]
     Indication: MIGRAINE
     Dosage: 25MG
     Route: 048
  2. CICLOSPORIN [Concomitant]
     Route: 065
  3. PREDNISONE [Concomitant]
     Dosage: 5 MG/DAY
     Route: 065
  4. DILTIAZEM [Concomitant]
     Dosage: 120 MG/DAY
     Route: 065
  5. ATENOLOL [Concomitant]
     Dosage: 50 MG/DAY
     Route: 065
  6. ALLOPURINOL [Concomitant]
     Dosage: 150 MG/DAY
     Route: 065
  7. THIAMAZOLE [Concomitant]
     Dosage: 2.5 MG/DAY
     Route: 065
  8. RISEDRONIC ACID [Concomitant]
     Dosage: 35 MG/WEEK
     Route: 065
  9. TEMAZEPAM [Concomitant]
     Route: 065
  10. ALPRAZOLAM [Concomitant]
     Route: 065
  11. FUROSEMIDE [Concomitant]
     Route: 065

REACTIONS (2)
  - Renal infarct [Not Recovered/Not Resolved]
  - Death [Fatal]
